FAERS Safety Report 6535308-7 (Version None)
Quarter: 2010Q1

REPORT INFORMATION
  Report Type: 
  Country: None (occurrence: None)
  Receive Date: 20100113
  Receipt Date: 20100105
  Transmission Date: 20100710
  Serious: Yes (Hospitalization)
  Sender: FDA-Public Use
  Company Number: CL-ROCHE-677896

PATIENT
  Sex: Male
  Weight: 70 kg

DRUGS (3)
  1. XELODA [Suspect]
     Indication: COLON CANCER
     Dosage: FREQUENCY: TWICE
     Route: 048
     Dates: start: 20090817
  2. ENALAPRIL [Concomitant]
     Route: 048
  3. CLORFENAMINA [Concomitant]
     Route: 048

REACTIONS (4)
  - DIARRHOEA [None]
  - MUCOSAL INFLAMMATION [None]
  - PALMAR-PLANTAR ERYTHRODYSAESTHESIA SYNDROME [None]
  - VOMITING [None]
